FAERS Safety Report 24584820 (Version 1)
Quarter: 2024Q4

REPORT INFORMATION
  Report Type: Spontaneous
  Country: US (occurrence: US)
  Receive Date: 20241106
  Receipt Date: 20241106
  Transmission Date: 20250115
  Serious: No
  Sender: CALLIDITAS THERAPEUTICS AB
  Company Number: US-Calliditas-2024CAL01676

PATIENT
  Age: 56 Year
  Sex: Female

DRUGS (2)
  1. TARPEYO [Suspect]
     Active Substance: BUDESONIDE
     Indication: IgA nephropathy
     Route: 048
     Dates: start: 20230321
  2. SODIUM BICARBONATE [Concomitant]
     Active Substance: SODIUM BICARBONATE

REACTIONS (5)
  - Peripheral swelling [Unknown]
  - Prescribed underdose [Unknown]
  - Pain in extremity [Unknown]
  - Contusion [Unknown]
  - Swelling face [Unknown]

NARRATIVE: CASE EVENT DATE: 20240801
